FAERS Safety Report 6173309-1 (Version None)
Quarter: 2009Q2

REPORT INFORMATION
  Report Type: 
  Country: None (occurrence: None)
  Receive Date: 20090430
  Receipt Date: 20090420
  Transmission Date: 20091009
  Serious: Yes (Other)
  Sender: FDA-Public Use
  Company Number: PHHY2009GB15331

PATIENT
  Age: 40 Year
  Sex: Male

DRUGS (1)
  1. VOLTAROL PAIN- EZE(NCH) [Suspect]
     Indication: BACK PAIN
     Dosage: 12.5 MG
     Route: 048
     Dates: start: 20090420

REACTIONS (10)
  - DIARRHOEA [None]
  - DIZZINESS [None]
  - HEART RATE IRREGULAR [None]
  - HYPERHIDROSIS [None]
  - HYPOAESTHESIA [None]
  - LOSS OF CONSCIOUSNESS [None]
  - OEDEMA PERIPHERAL [None]
  - PRESYNCOPE [None]
  - PRURITUS [None]
  - YELLOW SKIN [None]
